FAERS Safety Report 9399128 (Version 1)
Quarter: 2013Q3

REPORT INFORMATION
  Report Type: Report from Study
  Country: US (occurrence: US)
  Receive Date: 20130715
  Receipt Date: 20130715
  Transmission Date: 20140515
  Serious: Yes (Other)
  Sender: FDA-Public Use
  Company Number: US-ROCHE-1038719

PATIENT
  Sex: 0

DRUGS (6)
  1. BEVACIZUMAB [Suspect]
     Indication: PANCREATIC CARCINOMA
     Dosage: ON DAY 1
     Route: 042
  2. BEVACIZUMAB [Suspect]
     Dosage: ON DAY 1 AND 15 OF CHEMORADIATION PHASE
     Route: 065
  3. GEMCITABINE [Suspect]
     Indication: PANCREATIC CARCINOMA
     Route: 042
  4. 5-FLUOROURACIL [Suspect]
     Indication: PANCREATIC CARCINOMA
     Dosage: OF CHEMORADIATION PHASE
     Route: 042
  5. OXALIPLATIN [Suspect]
     Indication: PANCREATIC CARCINOMA
     Dosage: ON DAY 2
     Route: 042
  6. OXALIPLATIN [Suspect]
     Dosage: GIVEN ON DAY 1,15 AND 29 OF CHEMORADIATION PHASE
     Route: 042

REACTIONS (10)
  - Neutropenia [Unknown]
  - Nausea [Unknown]
  - Vomiting [Unknown]
  - Leukopenia [Unknown]
  - Diarrhoea [Unknown]
  - Dehydration [Unknown]
  - Anaemia [Unknown]
  - Aspartate aminotransferase increased [Unknown]
  - Alanine aminotransferase increased [Unknown]
  - Hyperbilirubinaemia [Unknown]
